FAERS Safety Report 5729869-5 (Version None)
Quarter: 2008Q2

REPORT INFORMATION
  Report Type: 
  Country: None (occurrence: None)
  Receive Date: 20080502
  Receipt Date: 20080426
  Transmission Date: 20081010
  Serious: Yes (Other)
  Sender: FDA-Public Use
  Company Number: 2008010577

PATIENT
  Sex: Female

DRUGS (1)
  1. LISTERINE VANILLA MINT (MENTHOL, METHYL SALICYLATE, EUCALYPTOL, THYMOL [Suspect]
     Indication: PHARYNGOLARYNGEAL PAIN
     Dosage: 2 TABLESPOONS 2X A DAY, ORAL
     Route: 048
     Dates: start: 20060101, end: 20080423

REACTIONS (6)
  - ASTHMA [None]
  - DYSPHONIA [None]
  - GINGIVAL OEDEMA [None]
  - LIP EXFOLIATION [None]
  - LIP PAIN [None]
  - PHARYNGOLARYNGEAL PAIN [None]
